FAERS Safety Report 4950779-5 (Version None)
Quarter: 2006Q1

REPORT INFORMATION
  Report Type: 
  Country: None (occurrence: None)
  Receive Date: 20060321
  Receipt Date: 20060321
  Transmission Date: 20060701
  Serious: Yes (Hospitalization, Other)
  Sender: FDA-Public Use
  Company Number: None

PATIENT
  Sex: Female
  Weight: 50.4 kg

DRUGS (6)
  1. CYTARABINE [Suspect]
     Indication: BURKITT'S LYMPHOMA
     Dosage: 3000 MG
     Dates: start: 20060302, end: 20060303
  2. CYTARABINE [Suspect]
     Indication: LEUKAEMIA
     Dosage: 3000 MG
     Dates: start: 20060302, end: 20060303
  3. ETOPOSIDE [Suspect]
     Dosage: 240 MG
     Dates: start: 20060302, end: 20060303
  4. IFOSFAMIDE [Suspect]
     Dosage: 6000 MG
     Dates: start: 20060227, end: 20060303
  5. MESNA [Suspect]
     Dosage: 4500 MG
     Dates: start: 20060227, end: 20060303
  6. VINCRISTINE SULFATE [Suspect]
     Dosage: 2 MG
     Dates: start: 20060227, end: 20060227

REACTIONS (6)
  - DEHYDRATION [None]
  - DYSPNOEA EXERTIONAL [None]
  - ENTEROBACTER INFECTION [None]
  - HYPOTENSION [None]
  - SEPSIS [None]
  - URINARY TRACT INFECTION [None]
